FAERS Safety Report 4688147-6 (Version None)
Quarter: 2005Q2

REPORT INFORMATION
  Report Type: 
  Country: None (occurrence: None)
  Receive Date: 20050610
  Receipt Date: 20050525
  Transmission Date: 20051028
  Serious: Yes (Other)
  Sender: FDA-Public Use
  Company Number: PHBS2005CA07481

PATIENT
  Age: 57 Year
  Sex: Female

DRUGS (3)
  1. ZOMETA [Suspect]
     Indication: OSTEOPOROSIS
     Dosage: 4 MG, QMO
     Route: 042
     Dates: start: 20021013, end: 20050228
  2. CALCIUM GLUCONATE [Concomitant]
     Route: 065
  3. VITAMIN D [Concomitant]
     Route: 065

REACTIONS (10)
  - ACTINOMYCOSIS [None]
  - ASEPTIC NECROSIS BONE [None]
  - BACTERIAL INFECTION [None]
  - EXCESSIVE GRANULATION TISSUE [None]
  - FUNGAL INFECTION [None]
  - HYPERPLASIA [None]
  - INFLAMMATION [None]
  - OSTEOMYELITIS [None]
  - PAIN IN JAW [None]
  - TOOTH ABSCESS [None]
